FAERS Safety Report 5463680-8 (Version None)
Quarter: 2007Q3

REPORT INFORMATION
  Report Type: 
  Country: None (occurrence: None)
  Receive Date: 20070919
  Receipt Date: 20070905
  Transmission Date: 20080115
  Serious: Yes (Hospitalization, Other)
  Sender: FDA-Public Use
  Company Number: 237515K07USA

PATIENT
  Age: 54 Year
  Sex: Female

DRUGS (2)
  1. REBIF [Suspect]
     Indication: MULTIPLE SCLEROSIS
     Dosage: 44 MCG, 3 IN 1 WEEKS, SUBCUTANEOUS
     Route: 058
     Dates: start: 20020807
  2. NOVANTRONE [Suspect]
     Indication: MULTIPLE SCLEROSIS

REACTIONS (4)
  - DECUBITUS ULCER [None]
  - MALAISE [None]
  - NEPHROLITHIASIS [None]
  - PYREXIA [None]
